FAERS Safety Report 4289834-4 (Version None)
Quarter: 2004Q1

REPORT INFORMATION
  Report Type: 
  Country: None (occurrence: None)
  Receive Date: 20040209
  Receipt Date: 20031210
  Transmission Date: 20041129
  Serious: No
  Sender: FDA-Public Use
  Company Number: US-GLAXOSMITHKLINE-A0442622A

PATIENT
  Age: 43 Year
  Sex: Male

DRUGS (3)
  1. PAXIL [Suspect]
     Indication: DEPRESSION
     Dosage: 25MG PER DAY
     Route: 048
     Dates: start: 20031206, end: 20031210
  2. LORAZEPAM [Suspect]
  3. AMBIEN [Concomitant]

REACTIONS (3)
  - ANXIETY [None]
  - RESPIRATORY RATE INCREASED [None]
  - TREMOR [None]
